FAERS Safety Report 10488133 (Version 1)
Quarter: 2014Q4

REPORT INFORMATION
  Report Type: Spontaneous
  Country: AU (occurrence: AU)
  Receive Date: 20141002
  Receipt Date: 20141002
  Transmission Date: 20150528
  Serious: Yes (Death)
  Sender: FDA-Public Use
  Company Number: AU-009507513-1409AUS011613

PATIENT
  Age: 56 Year

DRUGS (3)
  1. RIBAVIRIN. [Suspect]
     Active Substance: RIBAVIRIN
     Indication: HEPATIC CIRRHOSIS
     Dosage: 1 GRAM, UNK
     Route: 048
     Dates: start: 20140424
  2. PEGASYS [Suspect]
     Active Substance: PEGINTERFERON ALFA-2A
     Indication: HEPATIC CIRRHOSIS
     Dosage: 90 MICROGRAM, UNK
     Dates: start: 20140424, end: 20140522
  3. PEGASYS [Suspect]
     Active Substance: PEGINTERFERON ALFA-2A
     Dosage: 135 MICROGRAM, UNK
     Dates: start: 20140522

REACTIONS (5)
  - Oedema peripheral [Unknown]
  - Pruritus [Unknown]
  - Peritonitis bacterial [Fatal]
  - Platelet count increased [Unknown]
  - Nephrolithiasis [Not Recovered/Not Resolved]

NARRATIVE: CASE EVENT DATE: 20140508
